FAERS Safety Report 5068425-1 (Version None)
Quarter: 2006Q3

REPORT INFORMATION
  Report Type: 
  Country: None (occurrence: None)
  Receive Date: 20060802
  Receipt Date: 20050921
  Transmission Date: 20061208
  Serious: No
  Sender: FDA-Public Use
  Company Number: US-BRISTOL-MYERS SQUIBB COMPANY-13117684

PATIENT
  Age: 77 Year
  Sex: Female
  Weight: 79 kg

DRUGS (7)
  1. COUMADIN [Suspect]
     Indication: THROMBOSIS
     Dosage: BEGAN 7-8 YEARS AGO
  2. ATENOLOL [Concomitant]
     Dates: start: 20050501
  3. ASPIRIN [Concomitant]
     Dates: start: 20050501
  4. CHONDROITIN SULFATE + GLUCOSAMINE [Concomitant]
  5. METAMUCIL [Concomitant]
  6. ONE-A-DAY [Concomitant]
  7. ZINC [Concomitant]

REACTIONS (1)
  - INTERNATIONAL NORMALISED RATIO ABNORMAL [None]
